FAERS Safety Report 24803077 (Version 1)
Quarter: 2025Q1

REPORT INFORMATION
  Report Type: Spontaneous
  Country: CA (occurrence: CA)
  Receive Date: 20250103
  Receipt Date: 20250103
  Transmission Date: 20250409
  Serious: Yes (Hospitalization)
  Sender: ORGANON
  Company Number: CA-ORGANON-O2412CAN002761

PATIENT
  Age: 81 Year
  Sex: Male
  Weight: 89 kg

DRUGS (6)
  1. ZOCOR [Suspect]
     Active Substance: SIMVASTATIN
     Indication: Dyslipidaemia
     Dosage: 80 MILLIGRAM, QD (1 EVERY 1 DAYS)
     Route: 048
  2. CANAGLIFLOZIN [Concomitant]
     Active Substance: CANAGLIFLOZIN
  3. GALANTAMINE [Concomitant]
     Active Substance: GALANTAMINE
  4. GLICLAZIDE [Concomitant]
     Active Substance: GLICLAZIDE
  5. METFORMIN [Concomitant]
     Active Substance: METFORMIN HYDROCHLORIDE
  6. SITAGLIPTIN [Concomitant]
     Active Substance: SITAGLIPTIN

REACTIONS (3)
  - Fall [Recovering/Resolving]
  - Immobilisation prolonged [Recovering/Resolving]
  - Rhabdomyolysis [Recovering/Resolving]
